FAERS Safety Report 8560815-5 (Version None)
Quarter: 2012Q3

REPORT INFORMATION
  Report Type: 
  Country: None (occurrence: None)
  Receive Date: 20120727
  Receipt Date: 20120727
  Transmission Date: 20120928
  Serious: Yes (Hospitalization)
  Sender: FDA-Public Use
  Company Number: None

PATIENT
  Age: 60 Year
  Sex: Female
  Weight: 68.2 kg

DRUGS (5)
  1. ADVIL PM [Suspect]
     Indication: SLEEP DISORDER
     Dosage: 2 TABLETS, 2-3 TTIMES/WEEK PO
     Route: 048
  2. NAPROXEN (ALEVE) [Suspect]
     Dosage: 2 TABLETS DAILY, PO
     Route: 048
  3. AVONEX [Concomitant]
  4. TOPCARE [Concomitant]
  5. HYZAAR [Concomitant]

REACTIONS (4)
  - HAEMORRHAGIC ANAEMIA [None]
  - GASTRIC ULCER [None]
  - MALIGNANT MELANOMA [None]
  - UPPER GASTROINTESTINAL HAEMORRHAGE [None]
